FAERS Safety Report 22066240 (Version 1)
Quarter: 2023Q1

REPORT INFORMATION
  Report Type: Spontaneous
  Country: US (occurrence: None)
  Receive Date: 20230305
  Receipt Date: 20230305
  Transmission Date: 20230418
  Serious: Yes (Disabling)
  Sender: FDA-Public Use
  Company Number: None

PATIENT
  Age: 51 Year
  Sex: Female
  Weight: 60.8 kg

DRUGS (6)
  1. TEPEZZA [Suspect]
     Active Substance: TEPROTUMUMAB-TRBW
     Indication: Endocrine ophthalmopathy
     Dosage: 100MG ONC E IVPB??800MG EVERY 3 WEEKS IVPB
     Dates: start: 20220331, end: 20220824
  2. TEPEZZA [Suspect]
     Active Substance: TEPROTUMUMAB-TRBW
  3. LEVOTHYROXINE [Concomitant]
  4. VITAMIN C + Long term use [Concomitant]
  5. CALCIUM + VITAMIN d = LONG TERM USE [Concomitant]
  6. VITAMIN B COMPLEX - long term use [Concomitant]

REACTIONS (3)
  - Tinnitus [None]
  - Therapy change [None]
  - Deafness [None]

NARRATIVE: CASE EVENT DATE: 20230216
